FAERS Safety Report 9790880 (Version 1)
Quarter: 2013Q4

REPORT INFORMATION
  Report Type: Spontaneous
  Country: GB (occurrence: GB)
  Receive Date: 20131231
  Receipt Date: 20131231
  Transmission Date: 20140711
  Serious: Yes (Hospitalization, Other)
  Sender: FDA-Public Use
  Company Number: GB-BRISTOL-MYERS SQUIBB COMPANY-19935956

PATIENT
  Age: 75 Year
  Sex: Female
  Weight: 74 kg

DRUGS (1)
  1. DASATINIB [Suspect]
     Indication: CHRONIC MYELOID LEUKAEMIA
     Dates: start: 20091116, end: 20130927

REACTIONS (2)
  - Pleural effusion [Recovered/Resolved]
  - Lung neoplasm malignant [Unknown]
